FAERS Safety Report 4580780-5 (Version None)
Quarter: 2005Q1

REPORT INFORMATION
  Report Type: 
  Country: None (occurrence: None)
  Receive Date: 20050214
  Receipt Date: 20040601
  Transmission Date: 20050727
  Serious: No
  Sender: FDA-Public Use
  Company Number: S04-USA-02836-01

PATIENT
  Age: 50 Year
  Sex: Female

DRUGS (5)
  1. LAMOTRIGINE [Suspect]
     Indication: DRUG USE FOR UNKNOWN INDICATION
     Dosage: 25MG PER DAY
     Route: 048
     Dates: start: 20040425
  2. LEXAPRO [Suspect]
     Indication: DEPRESSION
     Dosage: 10MG PER DAY
     Route: 048
     Dates: start: 20040101
  3. LEXAPRO [Suspect]
     Dosage: 5MG PER DAY
     Route: 048
     Dates: start: 20040426, end: 20040101
  4. ABILIFY [Concomitant]
     Dosage: 30MG PER DAY
     Route: 065
  5. BENADRYL [Concomitant]
     Dosage: 50MG PER DAY
     Route: 065

REACTIONS (1)
  - BRADYCARDIA [None]
